FAERS Safety Report 4535714-6 (Version None)
Quarter: 2004Q4

REPORT INFORMATION
  Report Type: 
  Country: None (occurrence: None)
  Receive Date: 20041223
  Receipt Date: 20031229
  Transmission Date: 20050328
  Serious: No
  Sender: FDA-Public Use
  Company Number: US-GLAXOSMITHKLINE-A0490766A

PATIENT
  Age: 7 Year
  Sex: Male

DRUGS (3)
  1. FLONASE [Suspect]
     Dosage: 2SPR PER DAY
     Route: 045
     Dates: start: 20030601
  2. LACTULOSE [Concomitant]
  3. CLARITIN [Concomitant]

REACTIONS (3)
  - LACRIMATION INCREASED [None]
  - PARAESTHESIA [None]
  - SNEEZING [None]
